FAERS Safety Report 4758651-0 (Version None)
Quarter: 2005Q3

REPORT INFORMATION
  Report Type: 
  Country: None (occurrence: None)
  Receive Date: 20050901
  Receipt Date: 20050822
  Transmission Date: 20060218
  Serious: Yes (Other)
  Sender: FDA-Public Use
  Company Number: 2005UW12430

PATIENT
  Age: 70 Year
  Sex: Male
  Weight: 102.1 kg

DRUGS (2)
  1. CRESTOR [Suspect]
     Route: 048
  2. 17 MULTIPLE MEDICATIONS [Concomitant]

REACTIONS (1)
  - MYOCARDIAL INFARCTION [None]
